FAERS Safety Report 8227538-3 (Version None)
Quarter: 2012Q1

REPORT INFORMATION
  Report Type: 
  Country: None (occurrence: None)
  Receive Date: 20120322
  Receipt Date: 20120316
  Transmission Date: 20120608
  Serious: Yes (Death)
  Sender: FDA-Public Use
  Company Number: PH-ASTELLAS-2012JP002386

PATIENT
  Sex: Male

DRUGS (2)
  1. MICAFUNGIN [Suspect]
     Indication: SYSTEMIC CANDIDA
     Dosage: 50 MG, BID
     Route: 042
     Dates: start: 20120310, end: 20120313
  2. ANTIBIOTICS [Concomitant]
     Indication: SYSTEMIC CANDIDA
     Route: 065

REACTIONS (1)
  - DEATH [None]
